FAERS Safety Report 21512966 (Version 1)
Quarter: 2022Q4

REPORT INFORMATION
  Report Type: Report from Study
  Country: US (occurrence: US)
  Receive Date: 20221027
  Receipt Date: 20221027
  Transmission Date: 20230113
  Serious: Yes (Hospitalization, Other)
  Sender: FDA-Public Use
  Company Number: US-BRISTOL-MYERS SQUIBB COMPANY-2022-125375

PATIENT
  Age: 67 Year
  Sex: Male

DRUGS (1)
  1. ORENCIA [Suspect]
     Active Substance: ABATACEPT
     Indication: Product used for unknown indication
     Dosage: ABOUT 2 YEARS
     Route: 058

REACTIONS (3)
  - COVID-19 [Unknown]
  - Myocardial infarction [Unknown]
  - Bladder cancer [Unknown]

NARRATIVE: CASE EVENT DATE: 20211201
